FAERS Safety Report 23955539 (Version 3)
Quarter: 2024Q2

REPORT INFORMATION
  Report Type: Spontaneous
  Country: JP (occurrence: JP)
  Receive Date: 20240610
  Receipt Date: 20240626
  Transmission Date: 20240716
  Serious: Yes (Other)
  Sender: FDA-Public Use
  Company Number: JP-UCBJ-CD202405087UCBPHAPROD

PATIENT
  Weight: 2.714 kg

DRUGS (9)
  1. LEVETIRACETAM [Suspect]
     Active Substance: LEVETIRACETAM
     Indication: Tonic convulsion
     Dosage: UNK
     Route: 041
     Dates: start: 20230926
  2. LEVETIRACETAM [Suspect]
     Active Substance: LEVETIRACETAM
     Indication: Molybdenum cofactor deficiency
  3. LEVETIRACETAM [Suspect]
     Active Substance: LEVETIRACETAM
     Indication: Off label use
  4. VIMPAT [Suspect]
     Active Substance: LACOSAMIDE
     Indication: Tonic convulsion
     Dosage: UNK
     Route: 041
     Dates: start: 20230927
  5. VIMPAT [Suspect]
     Active Substance: LACOSAMIDE
     Indication: Molybdenum cofactor deficiency
  6. VIMPAT [Suspect]
     Active Substance: LACOSAMIDE
     Indication: Off label use
  7. PHENOBARBITAL [Concomitant]
     Active Substance: PHENOBARBITAL
     Indication: Tonic convulsion
     Dosage: UNK
     Route: 041
  8. PHENOBARBITAL [Concomitant]
     Active Substance: PHENOBARBITAL
     Indication: Molybdenum cofactor deficiency
  9. FOSPHENYTOIN SODIUM HEPTAHYDRATE [Concomitant]
     Active Substance: FOSPHENYTOIN SODIUM HEPTAHYDRATE
     Indication: Tonic convulsion
     Dosage: UNK
     Route: 041

REACTIONS (3)
  - Cerebral atrophy [Unknown]
  - Off label use [Unknown]
  - Drug effective for unapproved indication [Unknown]

NARRATIVE: CASE EVENT DATE: 20231005
